FAERS Safety Report 24297567 (Version 9)
Quarter: 2025Q3

REPORT INFORMATION
  Report Type: Spontaneous
  Country: CA (occurrence: CA)
  Receive Date: 20240909
  Receipt Date: 20250710
  Transmission Date: 20251021
  Serious: Yes (Congenital Anomaly, Other)
  Sender: CELLTRION
  Company Number: CA-PFIZER INC-202400247404

PATIENT

DRUGS (178)
  1. INFLIXIMAB [Suspect]
     Active Substance: INFLIXIMAB
     Route: 064
  2. INFLIXIMAB [Suspect]
     Active Substance: INFLIXIMAB
     Route: 064
  3. AIMOVIG [Suspect]
     Active Substance: ERENUMAB-AOOE
     Route: 064
  4. COSENTYX [Suspect]
     Active Substance: SECUKINUMAB
     Route: 064
  5. DICLOFENAC POTASSIUM [Suspect]
     Active Substance: DICLOFENAC POTASSIUM
     Route: 064
  6. DICLOFENAC SODIUM [Suspect]
     Active Substance: DICLOFENAC SODIUM
     Route: 064
  7. DICLOFENAC [Suspect]
     Active Substance: DICLOFENAC
     Route: 064
  8. ACETAMINOPHEN [Suspect]
     Active Substance: ACETAMINOPHEN
     Route: 064
  9. ACETAMINOPHEN AND CODEINE [Suspect]
     Active Substance: ACETAMINOPHEN\CODEINE PHOSPHATE
     Route: 064
  10. ACTEMRA [Suspect]
     Active Substance: TOCILIZUMAB
     Route: 064
  11. ACTEMRA [Suspect]
     Active Substance: TOCILIZUMAB
     Route: 064
  12. ACTEMRA [Suspect]
     Active Substance: TOCILIZUMAB
     Route: 064
  13. ACTEMRA [Suspect]
     Active Substance: TOCILIZUMAB
     Route: 064
  14. ACTEMRA [Suspect]
     Active Substance: TOCILIZUMAB
     Route: 064
  15. ACTEMRA [Suspect]
     Active Substance: TOCILIZUMAB
     Route: 064
  16. ACTEMRA [Suspect]
     Active Substance: TOCILIZUMAB
     Route: 064
  17. ACTEMRA [Suspect]
     Active Substance: TOCILIZUMAB
     Route: 064
  18. ACTEMRA [Suspect]
     Active Substance: TOCILIZUMAB
     Route: 064
  19. ACTEMRA [Suspect]
     Active Substance: TOCILIZUMAB
     Route: 064
  20. ALENDRONATE SODIUM [Suspect]
     Active Substance: ALENDRONATE SODIUM
     Route: 064
  21. ALENDRONIC ACID [Suspect]
     Active Substance: ALENDRONIC ACID
     Route: 064
  22. LEFLUNOMIDE [Suspect]
     Active Substance: LEFLUNOMIDE
     Route: 064
  23. LEFLUNOMIDE [Suspect]
     Active Substance: LEFLUNOMIDE
     Route: 064
  24. LEFLUNOMIDE [Suspect]
     Active Substance: LEFLUNOMIDE
     Route: 064
  25. LEFLUNOMIDE [Suspect]
     Active Substance: LEFLUNOMIDE
     Route: 064
  26. LEFLUNOMIDE [Suspect]
     Active Substance: LEFLUNOMIDE
     Route: 064
  27. LEFLUNOMIDE [Suspect]
     Active Substance: LEFLUNOMIDE
     Route: 064
  28. LEFLUNOMIDE [Suspect]
     Active Substance: LEFLUNOMIDE
     Route: 064
  29. LEFLUNOMIDE [Suspect]
     Active Substance: LEFLUNOMIDE
     Route: 064
  30. LEFLUNOMIDE [Suspect]
     Active Substance: LEFLUNOMIDE
     Route: 064
  31. PREDNISONE [Suspect]
     Active Substance: PREDNISONE
     Route: 064
  32. ARAVA [Suspect]
     Active Substance: LEFLUNOMIDE
     Route: 064
  33. ATOMOXETINE HYDROCHLORIDE [Suspect]
     Active Substance: ATOMOXETINE HYDROCHLORIDE
     Route: 064
  34. ATOMOXETINE HYDROCHLORIDE [Suspect]
     Active Substance: ATOMOXETINE HYDROCHLORIDE
     Route: 064
  35. AZATHIOPRINE SODIUM [Suspect]
     Active Substance: AZATHIOPRINE SODIUM
     Route: 064
  36. AZATHIOPRINE SODIUM [Suspect]
     Active Substance: AZATHIOPRINE SODIUM
     Route: 064
  37. BERINERT [Suspect]
     Active Substance: HUMAN C1-ESTERASE INHIBITOR
     Route: 064
  38. BERINERT [Suspect]
     Active Substance: HUMAN C1-ESTERASE INHIBITOR
     Route: 064
  39. BOTULINUM TOXIN TYPE A [Suspect]
     Active Substance: BOTULINUM TOXIN TYPE A
     Route: 064
  40. BOTULINUM TOXIN TYPE A [Suspect]
     Active Substance: BOTULINUM TOXIN TYPE A
     Route: 064
  41. BUTRANS [Suspect]
     Active Substance: BUPRENORPHINE
     Route: 064
  42. CALCIUM ASCORBATE [Suspect]
     Active Substance: CALCIUM ASCORBATE
     Route: 064
  43. CALCIUM CITRATE [Suspect]
     Active Substance: CALCIUM CITRATE
     Route: 064
  44. CALCIUM GLUBIONATE [Suspect]
     Active Substance: CALCIUM GLUBIONATE
     Route: 064
  45. CANDESARTAN [Suspect]
     Active Substance: CANDESARTAN
     Route: 064
  46. CELEBREX [Suspect]
     Active Substance: CELECOXIB
     Route: 064
  47. CELEBREX [Suspect]
     Active Substance: CELECOXIB
     Route: 064
  48. CELEBREX [Suspect]
     Active Substance: CELECOXIB
     Route: 064
  49. CETIRIZINE HYDROCHLORIDE [Suspect]
     Active Substance: CETIRIZINE HYDROCHLORIDE
     Route: 064
  50. CETIRIZINE HYDROCHLORIDE [Suspect]
     Active Substance: CETIRIZINE HYDROCHLORIDE
     Route: 064
  51. CETIRIZINE HYDROCHLORIDE [Suspect]
     Active Substance: CETIRIZINE HYDROCHLORIDE
     Route: 064
  52. CETIRIZINE HYDROCHLORIDE [Suspect]
     Active Substance: CETIRIZINE HYDROCHLORIDE
     Route: 064
  53. CETIRIZINE HYDROCHLORIDE [Suspect]
     Active Substance: CETIRIZINE HYDROCHLORIDE
     Route: 064
  54. CHLORHEXIDINE GLUCONATE [Suspect]
     Active Substance: CHLORHEXIDINE GLUCONATE
     Route: 064
  55. CHOLECALCIFEROL [Suspect]
     Active Substance: CHOLECALCIFEROL
     Route: 064
  56. CIMZIA [Suspect]
     Active Substance: CERTOLIZUMAB PEGOL
     Route: 064
  57. CIMZIA [Suspect]
     Active Substance: CERTOLIZUMAB PEGOL
     Route: 064
  58. CIMZIA [Suspect]
     Active Substance: CERTOLIZUMAB PEGOL
     Route: 064
  59. CORTISONE ACETATE [Suspect]
     Active Substance: CORTISONE ACETATE
     Route: 064
  60. CORTISONE ACETATE [Suspect]
     Active Substance: CORTISONE ACETATE
     Route: 064
  61. CORTISONE ACETATE [Suspect]
     Active Substance: CORTISONE ACETATE
     Route: 064
  62. CORTISONE ACETATE [Suspect]
     Active Substance: CORTISONE ACETATE
     Route: 064
  63. CORTISONE ACETATE [Suspect]
     Active Substance: CORTISONE ACETATE
     Route: 064
  64. CORTISONE ACETATE [Suspect]
     Active Substance: CORTISONE ACETATE
     Route: 064
  65. DESOXIMETASONE [Suspect]
     Active Substance: DESOXIMETASONE
     Route: 064
  66. DESOXIMETASONE [Suspect]
     Active Substance: DESOXIMETASONE
     Route: 064
  67. DESOXIMETASONE [Suspect]
     Active Substance: DESOXIMETASONE
     Route: 064
  68. DOMPERIDONE MALEATE [Suspect]
     Active Substance: DOMPERIDONE MALEATE
     Route: 064
  69. ERGOCALCIFEROL [Suspect]
     Active Substance: ERGOCALCIFEROL
     Route: 064
  70. FLUMETHASONE [Suspect]
     Active Substance: FLUMETHASONE
     Route: 064
  71. FLUMETHASONE PIVALATE [Suspect]
     Active Substance: FLUMETHASONE PIVALATE
     Route: 064
  72. FLUMETHASONE PIVALATE [Suspect]
     Active Substance: FLUMETHASONE PIVALATE
     Route: 064
  73. FOLIC ACID [Suspect]
     Active Substance: FOLIC ACID
     Route: 064
  74. FOLIC ACID [Suspect]
     Active Substance: FOLIC ACID
     Route: 064
  75. FOLIC ACID [Suspect]
     Active Substance: FOLIC ACID
     Route: 064
  76. FOLIC ACID [Suspect]
     Active Substance: FOLIC ACID
     Route: 064
  77. FOLIC ACID [Suspect]
     Active Substance: FOLIC ACID
     Route: 064
  78. FOLIC ACID [Suspect]
     Active Substance: FOLIC ACID
     Route: 064
  79. FOLIC ACID [Suspect]
     Active Substance: FOLIC ACID
     Route: 064
  80. FOLIC ACID [Suspect]
     Active Substance: FOLIC ACID
     Route: 064
  81. FOLIC ACID [Suspect]
     Active Substance: FOLIC ACID
     Route: 064
  82. FOLIC ACID [Suspect]
     Active Substance: FOLIC ACID
     Route: 064
  83. FOSAMAX [Suspect]
     Active Substance: ALENDRONATE SODIUM
     Route: 064
  84. FOSAMAX [Suspect]
     Active Substance: ALENDRONATE SODIUM
     Route: 064
  85. FOSAMAX [Suspect]
     Active Substance: ALENDRONATE SODIUM
     Route: 064
  86. HAIR KERATIN AMINO ACIDS GOLD COMPLEX [Suspect]
     Active Substance: HAIR KERATIN AMINO ACIDS GOLD COMPLEX
     Route: 064
  87. GOLD SODIUM THIOMALATE [Suspect]
     Active Substance: GOLD SODIUM THIOMALATE
     Route: 064
  88. GOLD SODIUM THIOMALATE [Suspect]
     Active Substance: GOLD SODIUM THIOMALATE
     Route: 064
  89. HUMIRA [Suspect]
     Active Substance: ADALIMUMAB
     Route: 064
  90. HUMIRA [Suspect]
     Active Substance: ADALIMUMAB
     Route: 064
  91. HUMIRA [Suspect]
     Active Substance: ADALIMUMAB
     Route: 064
  92. HYDROCORTISONE PROBUTATE [Suspect]
     Active Substance: HYDROCORTISONE PROBUTATE
     Route: 064
  93. HYDROXYCHLOROQUINE [Suspect]
     Active Substance: HYDROXYCHLOROQUINE
     Route: 064
  94. HYDROXYCHLOROQUINE [Suspect]
     Active Substance: HYDROXYCHLOROQUINE
     Route: 064
  95. HYDROXYCHLOROQUINE [Suspect]
     Active Substance: HYDROXYCHLOROQUINE
     Route: 064
  96. HYDROXYCHLOROQUINE SULFATE [Suspect]
     Active Substance: HYDROXYCHLOROQUINE SULFATE
     Route: 064
  97. ISOPROPYL ALCOHOL [Suspect]
     Active Substance: ISOPROPYL ALCOHOL
     Route: 064
  98. ISOPROPYL ALCOHOL [Suspect]
     Active Substance: ISOPROPYL ALCOHOL
     Route: 064
  99. ISOPROPYL ALCOHOL [Suspect]
     Active Substance: ISOPROPYL ALCOHOL
     Route: 064
  100. LAMICTAL [Suspect]
     Active Substance: LAMOTRIGINE
     Route: 064
  101. LEFLUNOMIDE [Suspect]
     Active Substance: LEFLUNOMIDE
     Route: 064
  102. LEFLUNOMIDE [Suspect]
     Active Substance: LEFLUNOMIDE
     Route: 064
  103. LEFLUNOMIDE [Suspect]
     Active Substance: LEFLUNOMIDE
     Route: 064
  104. MAGNESIUM CITRATE [Suspect]
     Active Substance: MAGNESIUM CITRATE
     Route: 064
  105. METFORMIN HYDROCHLORIDE [Suspect]
     Active Substance: METFORMIN HYDROCHLORIDE
     Route: 064
  106. MINOCYCLINE [Suspect]
     Active Substance: MINOCYCLINE HYDROCHLORIDE
     Route: 064
  107. MINOCYCLINE HYDROCHLORIDE [Suspect]
     Active Substance: MINOCYCLINE HYDROCHLORIDE
     Route: 064
  108. MINOCYCLINE HYDROCHLORIDE [Suspect]
     Active Substance: MINOCYCLINE HYDROCHLORIDE
     Route: 064
  109. MYOCHRYSINE [Suspect]
     Active Substance: GOLD SODIUM THIOMALATE
     Route: 064
  110. MYRBETRIQ [Suspect]
     Active Substance: MIRABEGRON
     Route: 064
  111. NAPROXEN [Suspect]
     Active Substance: NAPROXEN
     Route: 064
  112. NAPROXEN SODIUM [Suspect]
     Active Substance: NAPROXEN SODIUM
     Route: 064
  113. NICOTINAMIDE [Suspect]
     Active Substance: NIACINAMIDE
     Route: 064
  114. NUCALA [Suspect]
     Active Substance: MEPOLIZUMAB
     Route: 064
  115. ORENCIA [Suspect]
     Active Substance: ABATACEPT
     Route: 064
  116. OXYCODONE HYDROCHLORIDE [Suspect]
     Active Substance: OXYCODONE HYDROCHLORIDE
     Route: 064
  117. OXYCODONE TEREPHTHALATE [Suspect]
     Active Substance: OXYCODONE TEREPHTHALATE
     Route: 064
  118. PERIOGARD [Suspect]
     Active Substance: CHLORHEXIDINE GLUCONATE
     Route: 064
  119. PHENYLEPHRINE HYDROCHLORIDE [Suspect]
     Active Substance: PHENYLEPHRINE HYDROCHLORIDE
     Route: 064
  120. PHTHALYLSULFATHIAZOLE [Suspect]
     Active Substance: PHTHALYLSULFATHIAZOLE
     Route: 064
  121. PREDNISONE [Suspect]
     Active Substance: PREDNISONE
     Route: 064
  122. PSEUDOEPHEDRINE HYDROCHLORIDE [Suspect]
     Active Substance: PSEUDOEPHEDRINE HYDROCHLORIDE
     Route: 064
  123. RAMIPRIL [Suspect]
     Active Substance: RAMIPRIL
     Route: 064
  124. CETIRIZINE HYDROCHLORIDE\PSEUDOEPHEDRINE HYDROCHLORIDE [Suspect]
     Active Substance: CETIRIZINE HYDROCHLORIDE\PSEUDOEPHEDRINE HYDROCHLORIDE
     Route: 064
  125. CETIRIZINE HYDROCHLORIDE\PSEUDOEPHEDRINE HYDROCHLORIDE [Suspect]
     Active Substance: CETIRIZINE HYDROCHLORIDE\PSEUDOEPHEDRINE HYDROCHLORIDE
     Route: 064
  126. CETIRIZINE HYDROCHLORIDE\PSEUDOEPHEDRINE HYDROCHLORIDE [Suspect]
     Active Substance: CETIRIZINE HYDROCHLORIDE\PSEUDOEPHEDRINE HYDROCHLORIDE
     Route: 064
  127. SIMPONI [Suspect]
     Active Substance: GOLIMUMAB
     Route: 064
  128. SIMPONI [Suspect]
     Active Substance: GOLIMUMAB
     Route: 064
  129. TOPAMAX [Suspect]
     Active Substance: TOPIRAMATE
     Route: 064
  130. TOPAMAX [Suspect]
     Active Substance: TOPIRAMATE
     Route: 064
  131. TOPAMAX [Suspect]
     Active Substance: TOPIRAMATE
     Route: 064
  132. VITAMIN C [Suspect]
     Active Substance: ASCORBIC ACID
     Route: 064
  133. ZINC [Suspect]
     Active Substance: ZINC
     Route: 064
  134. STELARA [Suspect]
     Active Substance: USTEKINUMAB
     Route: 064
  135. DICLOFENAC [Suspect]
     Active Substance: DICLOFENAC
     Route: 064
  136. METFORMIN HYDROCHLORIDE [Suspect]
     Active Substance: METFORMIN HYDROCHLORIDE
     Route: 064
  137. TRUXIMA [Suspect]
     Active Substance: RITUXIMAB-ABBS
     Route: 064
  138. TRUXIMA [Suspect]
     Active Substance: RITUXIMAB-ABBS
     Route: 064
  139. TRUXIMA [Suspect]
     Active Substance: RITUXIMAB-ABBS
     Route: 064
  140. TRUXIMA [Suspect]
     Active Substance: RITUXIMAB-ABBS
     Route: 064
  141. TRUXIMA [Suspect]
     Active Substance: RITUXIMAB-ABBS
     Route: 064
  142. TRUXIMA [Suspect]
     Active Substance: RITUXIMAB-ABBS
     Route: 064
  143. TRUXIMA [Suspect]
     Active Substance: RITUXIMAB-ABBS
     Route: 064
  144. DICLOFENAC SODIUM [Suspect]
     Active Substance: DICLOFENAC SODIUM
     Route: 064
  145. ALENDRONATE SODIUM\CHOLECALCIFEROL [Suspect]
     Active Substance: ALENDRONATE SODIUM\CHOLECALCIFEROL
     Route: 064
  146. ACETAMINOPHEN\TRAMADOL HYDROCHLORIDE [Suspect]
     Active Substance: ACETAMINOPHEN\TRAMADOL HYDROCHLORIDE
     Route: 064
  147. FLUMETHASONE\SALICYLIC ACID [Suspect]
     Active Substance: FLUMETHASONE\SALICYLIC ACID
     Route: 064
  148. NAPROXEN [Suspect]
     Active Substance: NAPROXEN
     Route: 064
  149. REMICADE [Suspect]
     Active Substance: INFLIXIMAB
     Route: 064
  150. REMICADE [Suspect]
     Active Substance: INFLIXIMAB
     Route: 064
  151. REMICADE [Suspect]
     Active Substance: INFLIXIMAB
     Route: 064
  152. REMICADE [Suspect]
     Active Substance: INFLIXIMAB
     Route: 064
  153. ENBREL [Suspect]
     Active Substance: ETANERCEPT
     Route: 064
  154. ENBREL [Suspect]
     Active Substance: ETANERCEPT
     Dosage: 50 MG, WEEKLY
     Route: 064
  155. ADALIMUMAB [Suspect]
     Active Substance: ADALIMUMAB
     Route: 064
  156. HYDROCORTISONE [Suspect]
     Active Substance: HYDROCORTISONE
     Route: 064
  157. METHOTREXATE [Suspect]
     Active Substance: METHOTREXATE
     Route: 064
  158. METHOTREXATE [Suspect]
     Active Substance: METHOTREXATE
     Route: 064
  159. METHOTREXATE [Suspect]
     Active Substance: METHOTREXATE
     Route: 064
  160. METHOTREXATE [Suspect]
     Active Substance: METHOTREXATE
     Route: 064
  161. METHYLPREDNISOLONE [Suspect]
     Active Substance: METHYLPREDNISOLONE
     Route: 064
  162. METHYLPREDNISOLONE SODIUM SUCCINATE [Suspect]
     Active Substance: METHYLPREDNISOLONE SODIUM SUCCINATE
     Route: 064
  163. SULFASALAZINE [Suspect]
     Active Substance: SULFASALAZINE
     Route: 064
  164. SULFASALAZINE [Suspect]
     Active Substance: SULFASALAZINE
     Route: 064
  165. SULFASALAZINE [Suspect]
     Active Substance: SULFASALAZINE
     Route: 064
  166. SULFASALAZINE [Suspect]
     Active Substance: SULFASALAZINE
     Route: 064
  167. SULFASALAZINE [Suspect]
     Active Substance: SULFASALAZINE
     Route: 064
  168. SULFASALAZINE [Suspect]
     Active Substance: SULFASALAZINE
     Route: 064
  169. SULFASALAZINE [Suspect]
     Active Substance: SULFASALAZINE
     Route: 064
  170. XELJANZ [Suspect]
     Active Substance: TOFACITINIB CITRATE
     Route: 064
  171. XELJANZ [Suspect]
     Active Substance: TOFACITINIB CITRATE
     Route: 064
  172. RITUXIMAB [Suspect]
     Active Substance: RITUXIMAB
     Route: 064
  173. RITUXIMAB [Suspect]
     Active Substance: RITUXIMAB
     Route: 064
  174. RITUXIMAB [Suspect]
     Active Substance: RITUXIMAB
     Route: 064
  175. RITUXIMAB [Suspect]
     Active Substance: RITUXIMAB
     Route: 064
  176. RITUXIMAB [Suspect]
     Active Substance: RITUXIMAB
     Route: 064
  177. RITUXIMAB [Suspect]
     Active Substance: RITUXIMAB
     Route: 064
  178. RITUXIMAB [Suspect]
     Active Substance: RITUXIMAB
     Route: 064

REACTIONS (2)
  - Maternal exposure during pregnancy [Unknown]
  - Congenital anomaly [Unknown]
